FAERS Safety Report 14899337 (Version 1)
Quarter: 2018Q2

REPORT INFORMATION
  Report Type: Spontaneous
  Country: IE (occurrence: IE)
  Receive Date: 20180516
  Receipt Date: 20180516
  Transmission Date: 20180711
  Serious: Yes (Other)
  Sender: FDA-Public Use
  Company Number: IE-BAXTER-2018BAX013933

PATIENT
  Sex: Male

DRUGS (4)
  1. OPDIVO [Suspect]
     Active Substance: NIVOLUMAB
     Indication: PRODUCT USED FOR UNKNOWN INDICATION
     Dosage: COMPOUNDED WITH SODIUM CHLORIDE 50 ML BAG
     Route: 042
     Dates: start: 20180213
  2. YERVOY [Suspect]
     Active Substance: IPILIMUMAB
     Indication: PRODUCT USED FOR UNKNOWN INDICATION
     Dosage: COMPOUNDED WITH SODIUM CHLORIDE 100 ML BAG
     Route: 042
     Dates: start: 20180213
  3. SODIUM CHLORIDE INTRAVENOUS INFUSION BP 0.9% W/V [Suspect]
     Active Substance: SODIUM CHLORIDE
     Indication: MEDICATION DILUTION
     Dosage: 50 ML BAG (COMPOUNDED WITH OPDIVO)
     Route: 042
     Dates: start: 20180213
  4. SODIUM CHLORIDE INTRAVENOUS INFUSION BP 0.9% W/V [Suspect]
     Active Substance: SODIUM CHLORIDE
     Dosage: 100 ML BAG (COMPOUNDED WITH YERVOY)
     Route: 042
     Dates: start: 20180213

REACTIONS (1)
  - Toxicity to various agents [Unknown]
